FAERS Safety Report 5088590-X (Version None)
Quarter: 2006Q3

REPORT INFORMATION
  Report Type: 
  Country: None (occurrence: None)
  Receive Date: 20060825
  Receipt Date: 20060814
  Transmission Date: 20061208
  Serious: Yes (Death)
  Sender: FDA-Public Use
  Company Number: US-JNJFOC-20060803966

PATIENT
  Age: 25 Year
  Sex: Female

DRUGS (3)
  1. FENTANYL [Suspect]
     Indication: DRUG USE FOR UNKNOWN INDICATION
     Route: 050
  2. HEROIN [Suspect]
     Indication: DRUG USE FOR UNKNOWN INDICATION
     Route: 050
  3. COCAINE [Suspect]
     Indication: DRUG USE FOR UNKNOWN INDICATION
     Route: 050

REACTIONS (2)
  - COMPLETED SUICIDE [None]
  - INTENTIONAL OVERDOSE [None]
